FAERS Safety Report 21093402 (Version 2)
Quarter: 2022Q3

REPORT INFORMATION
  Report Type: Spontaneous
  Country: BR (occurrence: BR)
  Receive Date: 20220718
  Receipt Date: 20220728
  Transmission Date: 20221027
  Serious: No
  Sender: FDA-Public Use
  Company Number: BR-NOVARTISPH-NVSC2022BR162026

PATIENT
  Sex: Female

DRUGS (1)
  1. METFORMIN HYDROCHLORIDE\VILDAGLIPTIN [Suspect]
     Active Substance: METFORMIN HYDROCHLORIDE\VILDAGLIPTIN
     Indication: Diabetes mellitus
     Dosage: 56 TABLETS (STARTED 5 YEARS)
     Route: 065

REACTIONS (7)
  - Nervousness [Unknown]
  - Blood glucose increased [Unknown]
  - Malaise [Unknown]
  - Product quality issue [Unknown]
  - Product physical issue [Unknown]
  - Product colour issue [Unknown]
  - Drug ineffective [Unknown]
